FAERS Safety Report 10007109 (Version 2)
Quarter: 2014Q2

REPORT INFORMATION
  Report Type: Spontaneous
  Country: US (occurrence: US)
  Receive Date: 20140313
  Receipt Date: 20140407
  Transmission Date: 20141212
  Serious: Yes (Hospitalization)
  Sender: FDA-Public Use
  Company Number: US-BAYER-2014-036392

PATIENT
  Age: 23 Year
  Sex: Female
  Weight: 52.15 kg

DRUGS (3)
  1. MIRENA [Suspect]
     Indication: CONTRACEPTION
     Dosage: 20 MCG/24HR, CONT
     Route: 015
     Dates: start: 20090511, end: 20120207
  2. NORCO [Concomitant]
     Indication: PAIN
  3. MOTRIN [Concomitant]
     Indication: PAIN

REACTIONS (9)
  - Uterine perforation [None]
  - Injury [None]
  - Pain [None]
  - Dyspareunia [None]
  - Scar [None]
  - Emotional distress [None]
  - Fear [None]
  - Depression [None]
  - Anxiety [None]
